FAERS Safety Report 16696368 (Version 1)
Quarter: 2019Q3

REPORT INFORMATION
  Report Type: Other
  Country: FR (occurrence: FR)
  Receive Date: 20190813
  Receipt Date: 20190813
  Transmission Date: 20191004
  Serious: Yes (Hospitalization)
  Sender: FDA-Public Use
  Company Number: FR-VALIDUS PHARMACEUTICALS LLC-FR-2019VAL000389

PATIENT

DRUGS (19)
  1. LAMOTRIGINE. [Suspect]
     Active Substance: LAMOTRIGINE
     Indication: POISONING DELIBERATE
     Dosage: 6 DF, TOTAL
     Route: 048
     Dates: start: 20190401, end: 20190401
  2. MIDAZOLAM [Suspect]
     Active Substance: MIDAZOLAM HYDROCHLORIDE
     Indication: SEDATION
     Dosage: UNK
     Route: 042
     Dates: start: 20190402
  3. FLUOXETINE [Suspect]
     Active Substance: FLUOXETINE HYDROCHLORIDE
     Indication: POISONING DELIBERATE
     Dosage: 14 DF, TOTAL
     Route: 048
     Dates: start: 20190401, end: 20190401
  4. GENTAMICIN SULFATE. [Suspect]
     Active Substance: GENTAMICIN SULFATE
     Indication: ANTIBIOTIC THERAPY
     Dosage: 400 MG, QD
     Route: 042
     Dates: start: 20190402, end: 20190405
  5. INSULINE                           /01223401/ [Concomitant]
     Active Substance: INSULIN NOS
     Indication: PRODUCT USED FOR UNKNOWN INDICATION
     Dosage: UNK
     Route: 065
     Dates: start: 20190402
  6. NALOXONE [Suspect]
     Active Substance: NALOXONE
     Indication: PRODUCT USED FOR UNKNOWN INDICATION
     Dosage: 1 DF, TOTAL
     Route: 042
     Dates: start: 20190401, end: 20190401
  7. XEROQUEL [Concomitant]
     Active Substance: QUETIAPINE FUMARATE
     Indication: PRODUCT USED FOR UNKNOWN INDICATION
     Route: 065
  8. AMOXICILLIN SODIUM AND POTASSIUM CLAVULANATE [Suspect]
     Active Substance: AMOXICILLIN\CLAVULANATE POTASSIUM
     Indication: ANTIBIOTIC THERAPY
     Dosage: UNK (2G/200MG EVERY 12H)
     Route: 042
     Dates: start: 20190401, end: 20190409
  9. CODEINE PHOSPHATE W/PARACETAMOL [Suspect]
     Active Substance: ACETAMINOPHEN\CODEINE PHOSPHATE
     Indication: POISONING DELIBERATE
     Dosage: 27 DF, TOTAL
     Route: 048
     Dates: start: 20190401, end: 20190401
  10. KETAMINE [Suspect]
     Active Substance: KETAMINE
     Indication: ANAESTHESIA
     Dosage: UNK
     Route: 041
     Dates: start: 20190401, end: 20190401
  11. CALCIPARINE [Concomitant]
     Active Substance: HEPARIN CALCIUM
     Indication: PRODUCT USED FOR UNKNOWN INDICATION
     Dosage: UNK
     Route: 065
     Dates: start: 20190405, end: 20190412
  12. EUPANTOL [Concomitant]
     Active Substance: PANTOPRAZOLE SODIUM
     Indication: PRODUCT USED FOR UNKNOWN INDICATION
     Dosage: UNK
     Route: 065
     Dates: start: 20190402
  13. THERALENE [Concomitant]
     Active Substance: TRIMEPRAZINE
     Indication: PRODUCT USED FOR UNKNOWN INDICATION
     Dosage: UNK
     Route: 065
     Dates: start: 20190401, end: 20190401
  14. FRAGMINE [Suspect]
     Active Substance: DALTEPARIN SODIUM
     Indication: THROMBOSIS PROPHYLAXIS
     Dosage: 1 DF, QD
     Route: 058
     Dates: start: 20190402
  15. FUROSEMIDE. [Suspect]
     Active Substance: FUROSEMIDE
     Indication: HYPERNATRAEMIA
     Dosage: 40 MG, QD
     Route: 042
     Dates: start: 20190403, end: 20190405
  16. BUMETANIDE. [Suspect]
     Active Substance: BUMETANIDE
     Indication: HYPERNATRAEMIA
     Dosage: 2 MG, QD
     Route: 042
     Dates: start: 20190405
  17. ACETYLCYSTEINE. [Suspect]
     Active Substance: ACETYLCYSTEINE
     Indication: POISONING
     Dosage: ACCORDING TO RCP PROTOCOL WITH WEIGHT ADJUSTMENT
     Route: 042
  18. HYDROCORTISONE. [Suspect]
     Active Substance: HYDROCORTISONE
     Indication: PRODUCT USED FOR UNKNOWN INDICATION
     Dosage: UNK
     Route: 042
     Dates: start: 20190402
  19. CELOCURINE                         /00057702/ [Suspect]
     Active Substance: SUCCINYLCHOLINE CHLORIDE
     Indication: ANAESTHESIA
     Dosage: UNK
     Route: 041
     Dates: start: 20190401, end: 20190401

REACTIONS (3)
  - Poisoning deliberate [Recovered/Resolved]
  - Thrombocytopenia [Recovered/Resolved]
  - Overdose [Unknown]

NARRATIVE: CASE EVENT DATE: 20190401
